FAERS Safety Report 5960766-6 (Version None)
Quarter: 2008Q4

REPORT INFORMATION
  Report Type: 
  Country: None (occurrence: None)
  Receive Date: 20081120
  Receipt Date: 20081114
  Transmission Date: 20090506
  Serious: Yes (Other)
  Sender: FDA-Public Use
  Company Number: JP-PFIZER INC-2008097737

PATIENT
  Age: 74 Year
  Sex: Male

DRUGS (11)
  1. XALATAN [Suspect]
     Indication: GLAUCOMA
     Dosage: DAILY DOSE:1DROP
     Route: 047
  2. DEPAS [Concomitant]
     Route: 048
  3. URIEF [Concomitant]
     Route: 048
  4. CYANOCOBALAMIN [Concomitant]
     Route: 048
  5. DIGOXIN [Concomitant]
     Route: 048
  6. ASPIRIN [Concomitant]
     Route: 048
  7. BLOPRESS [Concomitant]
     Route: 048
  8. RENIVACE [Concomitant]
     Route: 048
  9. PURSENNID [Concomitant]
     Route: 048
  10. LAXOBERON [Concomitant]
     Route: 048
  11. NOVOLIN R [Concomitant]

REACTIONS (1)
  - LID LAG [None]
